FAERS Safety Report 9555819 (Version 1)
Quarter: 2013Q3

REPORT INFORMATION
  Report Type: Spontaneous
  Country: US (occurrence: None)
  Receive Date: 20130906
  Receipt Date: 20130906
  Transmission Date: 20140515
  Serious: No
  Sender: FDA-Public Use
  Company Number: 163-POMAL-13053795

PATIENT
  Sex: Female

DRUGS (9)
  1. POMALYST (POMALIDOMIDE) (4 MILLIGRAM, CAPSULES) [Suspect]
     Indication: PLASMA CELL MYELOMA
     Dosage: 4 MG, 1 IN 1 D, PO
     Route: 048
     Dates: start: 201303
  2. DEXAMETHASONE (DEXAMETHASONE) (UNKNOWN) [Concomitant]
  3. FOLIC ACID (FOLIC ACID) (TABLETS) [Concomitant]
  4. VELCADE [Concomitant]
  5. VITAMIN D (ERGOCALCIFEROL) (UNKNOWN) [Concomitant]
  6. XANAX (ALPRAZOLAM) (TABLETS) [Concomitant]
  7. LORAZEPAM (LORAZEPAM) (TABLETS) [Concomitant]
  8. OMEPRAZOLE (OMPERAZOLE) (CAPSULES) [Concomitant]
  9. BACTRIM DS (BACTRIM) (TABLETS) [Concomitant]

REACTIONS (1)
  - Laboratory test abnormal [None]
